FAERS Safety Report 11213315 (Version 3)
Quarter: 2015Q3

REPORT INFORMATION
  Report Type: Spontaneous
  Country: HU (occurrence: HU)
  Receive Date: 20150623
  Receipt Date: 20150903
  Transmission Date: 20151125
  Serious: Yes (Hospitalization, Other)
  Sender: FDA-Public Use
  Company Number: HU-BAYER-2015-346893

PATIENT
  Age: 68 Year
  Sex: Male
  Weight: 68 kg

DRUGS (7)
  1. FRONTIN [Concomitant]
     Active Substance: ALPRAZOLAM
     Dosage: 0.5 MG, QD
  2. LHRH [Concomitant]
  3. XOFIGO [Suspect]
     Active Substance: RADIUM RA-223 DICHLORIDE
     Indication: PROSTATE CANCER STAGE IV
     Dosage: UNK
  4. ZOMETA [Concomitant]
     Active Substance: ZOLEDRONIC ACID
     Route: 042
  5. XOFIGO [Suspect]
     Active Substance: RADIUM RA-223 DICHLORIDE
     Indication: METASTASES TO BONE
     Dosage: UNK
     Dates: start: 20150511, end: 20150511
  6. ALGOPYRIN [Concomitant]
     Active Substance: METAMIZOLE SODIUM
     Dosage: UNK UNK, PRN
  7. DUROGESIC [Concomitant]
     Active Substance: FENTANYL
     Dosage: 2 UG/H
     Dates: start: 20150530

REACTIONS (11)
  - Metastases to meninges [Not Recovered/Not Resolved]
  - Nocturia [Recovered/Resolved]
  - Intracranial pressure increased [None]
  - Decreased appetite [None]
  - Weight decreased [None]
  - Vertigo [None]
  - Dyspnoea exertional [None]
  - Meningitis [Not Recovered/Not Resolved]
  - Dehydration [None]
  - Loss of consciousness [None]
  - Arthralgia [None]

NARRATIVE: CASE EVENT DATE: 201505
